FAERS Safety Report 8155582-3 (Version None)
Quarter: 2012Q1

REPORT INFORMATION
  Report Type: 
  Country: None (occurrence: None)
  Receive Date: 20120222
  Receipt Date: 20120215
  Transmission Date: 20120608
  Serious: Yes (Death)
  Sender: FDA-Public Use
  Company Number: PHHY2012BR000840

PATIENT
  Age: 94 Year
  Sex: Female

DRUGS (3)
  1. ROXFLAN [Concomitant]
     Indication: HYPERTENSION
     Dosage: 0.5 DF, DAILY
  2. EXELON [Suspect]
     Indication: DEMENTIA ALZHEIMER'S TYPE
     Dosage: UNK UKN, BID
     Route: 048
  3. HYDERGINE [Suspect]
     Indication: DEMENTIA ALZHEIMER'S TYPE
     Dosage: UNK,
     Dates: start: 20100101

REACTIONS (3)
  - CARDIAC ARREST [None]
  - ASTHENIA [None]
  - INFARCTION [None]
